FAERS Safety Report 12432533 (Version 1)
Quarter: 2016Q2

REPORT INFORMATION
  Report Type: Spontaneous
  Country: US (occurrence: US)
  Receive Date: 20160603
  Receipt Date: 20160603
  Transmission Date: 20160815
  Serious: No
  Sender: FDA-Public Use
  Company Number: US-ACTAVIS-2016-09353

PATIENT
  Sex: Male
  Weight: 77 kg

DRUGS (2)
  1. GUAIFENESIN, PSEUDOEPHEDRINE (ACTAVIS LABORATORIES FL, INC.) [Suspect]
     Active Substance: GUAIFENESIN\PSEUDOEPHEDRINE HYDROCHLORIDE
     Indication: NASAL CONGESTION
     Dosage: 2 DF, BID
     Route: 048
     Dates: start: 20160424, end: 20160425
  2. GUAIFENESIN, PSEUDOEPHEDRINE (ACTAVIS LABORATORIES FL, INC.) [Suspect]
     Active Substance: GUAIFENESIN\PSEUDOEPHEDRINE HYDROCHLORIDE
     Indication: SECRETION DISCHARGE

REACTIONS (1)
  - Heart rate increased [Not Recovered/Not Resolved]
